FAERS Safety Report 4545898-1 (Version None)
Quarter: 2005Q1

REPORT INFORMATION
  Report Type: 
  Country: None (occurrence: None)
  Receive Date: 20050103
  Receipt Date: 20041222
  Transmission Date: 20050727
  Serious: Yes (Hospitalization, Other)
  Sender: FDA-Public Use
  Company Number: 2004118910

PATIENT
  Age: 37 Year
  Sex: Female

DRUGS (2)
  1. NARDIL (PHENELAZINE SULFATE) [Suspect]
     Indication: DEPRESSION
     Dosage: 30 MG (15 MG, 2 IN 1 D), ORAL
     Route: 048
  2. SERTRALINE HCL [Concomitant]

REACTIONS (5)
  - MEDICATION ERROR [None]
  - OVERDOSE [None]
  - SOMNOLENCE [None]
  - SUICIDE ATTEMPT [None]
  - TREATMENT NONCOMPLIANCE [None]
